FAERS Safety Report 9471608 (Version 1)
Quarter: 2013Q3

REPORT INFORMATION
  Report Type: Spontaneous
  Country: IT (occurrence: None)
  Receive Date: 20130819
  Receipt Date: 20130819
  Transmission Date: 20140515
  Serious: Yes (Hospitalization)
  Sender: FDA-Public Use
  Company Number: B0915232A

PATIENT
  Age: 18 Month
  Sex: Female

DRUGS (2)
  1. IBUPROFEN (IBUPROFEN) (FORMULATION UNKNOWN) (GENERIC) [Suspect]
     Indication: RHINITIS
  2. BECLOMETHASONE DIPROPIONATE (BECLOMETHASONE DIPROPION) (FORMULATION UNKNOWN) (GENERIC) [Suspect]
     Indication: RHINITIS

REACTIONS (1)
  - Stevens-Johnson syndrome [None]
